FAERS Safety Report 21746059 (Version 1)
Quarter: 2022Q4

REPORT INFORMATION
  Report Type: Report from Study
  Country: US (occurrence: US)
  Receive Date: 20221219
  Receipt Date: 20221219
  Transmission Date: 20230112
  Serious: Yes (Other)
  Sender: FDA-Public Use
  Company Number: US-ABBVIE-4239694

PATIENT
  Sex: Female
  Weight: 92.986 kg

DRUGS (1)
  1. HUMIRA [Suspect]
     Active Substance: ADALIMUMAB
     Indication: Hidradenitis
     Dosage: CF
     Route: 058
     Dates: start: 202109

REACTIONS (2)
  - Pharyngitis bacterial [Not Recovered/Not Resolved]
  - Tonsillitis bacterial [Not Recovered/Not Resolved]
